FAERS Safety Report 18074040 (Version 25)
Quarter: 2022Q3

REPORT INFORMATION
  Report Type: Report from Study
  Country: CN (occurrence: None)
  Receive Date: 20200727
  Receipt Date: 20220718
  Transmission Date: 20221027
  Serious: Yes (Hospitalization)
  Sender: FDA-Public Use
  Company Number: CN-EISAI MEDICAL RESEARCH-EC-2020-077969

PATIENT
  Age: 56 Year
  Sex: Male
  Weight: 56 kg

DRUGS (10)
  1. LENVATINIB [Suspect]
     Active Substance: LENVATINIB
     Indication: Hepatocellular carcinoma
     Route: 048
     Dates: start: 20200117, end: 20200210
  2. LENVATINIB [Suspect]
     Active Substance: LENVATINIB
     Route: 048
     Dates: start: 20200303, end: 20200324
  3. LENVATINIB [Suspect]
     Active Substance: LENVATINIB
     Dosage: STARTING AT 8 MG, FLUCTUATED DOSAGE
     Route: 048
     Dates: start: 20200325, end: 20200820
  4. PEMBROLIZUMAB [Suspect]
     Active Substance: PEMBROLIZUMAB
     Indication: Hepatocellular carcinoma
     Route: 041
     Dates: start: 20200117, end: 20200117
  5. PEMBROLIZUMAB [Suspect]
     Active Substance: PEMBROLIZUMAB
     Route: 041
     Dates: start: 20200303, end: 20200303
  6. PEMBROLIZUMAB [Suspect]
     Active Substance: PEMBROLIZUMAB
     Route: 041
     Dates: start: 20200325, end: 20200811
  7. PEMBROLIZUMAB [Suspect]
     Active Substance: PEMBROLIZUMAB
     Route: 041
     Dates: start: 20200811, end: 20200811
  8. ENTECAVIR [Concomitant]
     Active Substance: ENTECAVIR
     Dates: start: 20170808
  9. TENOFOVIR DISOPROXIL FUMARATE [Concomitant]
     Active Substance: TENOFOVIR DISOPROXIL FUMARATE
     Dates: start: 20191219
  10. NIFEDIPINE [Concomitant]
     Active Substance: NIFEDIPINE
     Dates: start: 20200121

REACTIONS (1)
  - Platelet count decreased [Recovered/Resolved]

NARRATIVE: CASE EVENT DATE: 20200324
